FAERS Safety Report 9222135 (Version 6)
Quarter: 2013Q4

REPORT INFORMATION
  Report Type: Spontaneous
  Country: IE (occurrence: IE)
  Receive Date: 20130410
  Receipt Date: 20131003
  Transmission Date: 20140711
  Serious: Yes (Hospitalization)
  Sender: FDA-Public Use
  Company Number: PHFR2013IE002104

PATIENT
  Age: 69 Year
  Sex: Male

DRUGS (10)
  1. CLOZARIL [Suspect]
     Indication: SCHIZOPHRENIA
     Dosage: UNK
     Route: 048
     Dates: start: 20060720
  2. CLOZARIL [Suspect]
     Dosage: 350 MG, UNK
     Route: 048
     Dates: start: 200709
  3. CLOZARIL [Suspect]
     Dosage: 250 MG, UNK
     Route: 048
     Dates: start: 2007
  4. CLOZARIL [Suspect]
     Dosage: UNK
     Route: 048
     Dates: start: 20130513
  5. CLOZARIL [Suspect]
     Dosage: 250 MG, (100 MG MANE AND 150 MG NOCTE)
     Route: 048
     Dates: start: 20130617
  6. ASPIRIN [Concomitant]
     Dosage: 75 MG, QD
     Route: 048
  7. RAMIPRIL [Concomitant]
     Dosage: 5 MG, QD
     Route: 048
  8. HALOPERIDOL [Concomitant]
     Dosage: 10 MG, BID
     Route: 048
  9. PROCYCLIDINE [Concomitant]
     Dosage: 5 MG, QD
     Route: 048
  10. METFORMIN [Concomitant]
     Dosage: 500 MG, BID
     Route: 048

REACTIONS (12)
  - Urinary tract infection [Recovered/Resolved]
  - White blood cell count increased [Recovered/Resolved]
  - Neutrophil count increased [Recovered/Resolved]
  - Blood test abnormal [Unknown]
  - Circulatory collapse [Recovered/Resolved]
  - Schizophrenia [Recovering/Resolving]
  - Renal failure [Unknown]
  - Glomerular filtration rate decreased [Recovered/Resolved]
  - Lower respiratory tract infection [Recovered/Resolved]
  - White blood cell count decreased [Recovered/Resolved]
  - Haemoglobin decreased [Recovering/Resolving]
  - Platelet count decreased [Recovered/Resolved]
